FAERS Safety Report 5335946-3 (Version None)
Quarter: 2007Q2

REPORT INFORMATION
  Report Type: 
  Country: None (occurrence: None)
  Receive Date: 20070302
  Receipt Date: 20070116
  Transmission Date: 20071010
  Serious: No
  Sender: FDA-Public Use
  Company Number: PHEH2006US12994

PATIENT
  Age: 76 Year
  Sex: Female

DRUGS (5)
  1. EXJADE [Suspect]
     Indication: IRON OVERLOAD
  2. URSODIOL (URSODEOXYCHOLIC ACID) [Concomitant]
  3. ARANESP [Concomitant]
  4. NEUPOGEN [Concomitant]
  5. NEXIUM [Concomitant]

REACTIONS (7)
  - BLISTER [None]
  - ERYTHEMA [None]
  - PRURITUS [None]
  - RASH MACULO-PAPULAR [None]
  - SKIN REACTION [None]
  - SWELLING FACE [None]
  - URTICARIA [None]
